FAERS Safety Report 4345260-0 (Version None)
Quarter: 2004Q2

REPORT INFORMATION
  Report Type: 
  Country: None (occurrence: None)
  Receive Date: 20040422
  Receipt Date: 20040422
  Transmission Date: 20050107
  Serious: No
  Sender: FDA-Public Use
  Company Number: None

PATIENT
  Age: 58 Year
  Sex: Male
  Weight: 88 kg

DRUGS (1)
  1. QUETIAPINE 100 MG ASTRA ZENECA [Suspect]
     Indication: POST-TRAUMATIC STRESS DISORDER
     Dosage: 100 MG PO HS
     Route: 048
     Dates: start: 20040204, end: 20040210

REACTIONS (1)
  - ABDOMINAL PAIN UPPER [None]
